FAERS Safety Report 14537452 (Version 6)
Quarter: 2018Q2

REPORT INFORMATION
  Report Type: Spontaneous
  Country: US (occurrence: US)
  Receive Date: 20180215
  Receipt Date: 20180501
  Transmission Date: 20180711
  Serious: Yes (Hospitalization)
  Sender: FDA-Public Use
  Company Number: US-ACTELION-A-NJ2018-167486

PATIENT
  Age: 53 Year
  Sex: Female
  Weight: 79.37 kg

DRUGS (7)
  1. CELEXA [Concomitant]
     Active Substance: CITALOPRAM HYDROBROMIDE
  2. OPSUMIT [Suspect]
     Active Substance: MACITENTAN
     Indication: PULMONARY ARTERIAL HYPERTENSION
     Dosage: 10 MG, QD
     Route: 048
  3. COUMADIN [Concomitant]
     Active Substance: WARFARIN SODIUM
  4. VELETRI [Suspect]
     Active Substance: EPOPROSTENOL
     Indication: PULMONARY ARTERIAL HYPERTENSION
     Dosage: 65 NG/KG, PER MIN
     Route: 042
  5. ADEMPAS [Concomitant]
     Active Substance: RIOCIGUAT
     Dosage: UNK
     Dates: end: 20180126
  6. TRAMADOL. [Concomitant]
     Active Substance: TRAMADOL
  7. TYLENOL WITH CODEINE [Suspect]
     Active Substance: ACETAMINOPHEN\CODEINE PHOSPHATE
     Indication: PRODUCT USED FOR UNKNOWN INDICATION
     Route: 065

REACTIONS (19)
  - Malaise [Unknown]
  - Lethargy [Unknown]
  - Myalgia [Recovering/Resolving]
  - Depression [Recovering/Resolving]
  - Pain [Unknown]
  - Flushing [Unknown]
  - Abdominal distension [Unknown]
  - Emotional disorder [Unknown]
  - Inappropriate schedule of drug administration [Unknown]
  - Vomiting [Recovering/Resolving]
  - Abdominal pain upper [Recovering/Resolving]
  - Peripheral swelling [Unknown]
  - Insomnia [Unknown]
  - Tearfulness [Unknown]
  - Diarrhoea [Unknown]
  - Headache [Recovering/Resolving]
  - Gastrointestinal disorder [Unknown]
  - Device occlusion [Unknown]
  - Device leakage [Unknown]

NARRATIVE: CASE EVENT DATE: 20180306
